FAERS Safety Report 8982987 (Version 3)
Quarter: 2013Q3

REPORT INFORMATION
  Report Type: Report from Study
  Country: BE (occurrence: BE)
  Receive Date: 20121221
  Receipt Date: 20130716
  Transmission Date: 20140515
  Serious: Yes (Hospitalization)
  Sender: FDA-Public Use
  Company Number: BE-ABBOTT-12P-013-1024449-00

PATIENT
  Age: 44 Year
  Sex: Female
  Weight: 61 kg

DRUGS (5)
  1. HUMIRA [Suspect]
     Indication: ANKYLOSING SPONDYLITIS
     Dates: start: 201002, end: 20121101
  2. HUMIRA [Suspect]
     Dates: start: 20121201
  3. LANSOPRAZOL [Concomitant]
     Indication: PRODUCT USED FOR UNKNOWN INDICATION
  4. ALPRAZOLAM [Concomitant]
     Indication: INSOMNIA
  5. PIROXICAM [Concomitant]
     Indication: ARTHRITIS

REACTIONS (3)
  - Varicose vein [Recovered/Resolved]
  - Varicose vein [Recovered/Resolved]
  - Oedema peripheral [Recovered/Resolved]
